FAERS Safety Report 14204818 (Version 1)
Quarter: 2017Q4

REPORT INFORMATION
  Report Type: Spontaneous
  Country: US (occurrence: US)
  Receive Date: 20171118
  Receipt Date: 20171118
  Transmission Date: 20180321
  Serious: Yes (Disabling)
  Sender: FDA-Public Use
  Company Number: None

PATIENT
  Age: 54 Year
  Sex: Female
  Weight: 52.2 kg

DRUGS (4)
  1. NATURE-THROID [Concomitant]
     Active Substance: THYROID, PORCINE
  2. MAGNESIUM GLYCINATE [Concomitant]
     Active Substance: MAGNESIUM GLYCINATE
  3. KRILL OIL [Concomitant]
     Active Substance: DIETARY SUPPLEMENT
  4. CIPROFLOXACIN. [Suspect]
     Active Substance: CIPROFLOXACIN
     Indication: OROPHARYNGEAL PAIN
     Dosage: ?          QUANTITY:1 TABLET(S);?
     Route: 048
     Dates: start: 20171116, end: 20171117

REACTIONS (5)
  - Gait disturbance [None]
  - Muscle tightness [None]
  - Tendon disorder [None]
  - Tendon pain [None]
  - Intentional product use issue [None]

NARRATIVE: CASE EVENT DATE: 20171117
